FAERS Safety Report 25363406 (Version 1)
Quarter: 2025Q2

REPORT INFORMATION
  Report Type: Spontaneous
  Country: US (occurrence: None)
  Receive Date: 20250527
  Receipt Date: 20250527
  Transmission Date: 20250717
  Serious: Yes (Life-Threatening)
  Sender: FDA-CTU
  Company Number: None

PATIENT
  Age: 15 Year
  Sex: Female
  Weight: 67.5 kg

DRUGS (1)
  1. DAYQUIL SEVERE [Suspect]
     Active Substance: ACETAMINOPHEN\DEXTROMETHORPHAN HYDROBROMIDE\GUAIFENESIN\PHENYLEPHRINE HYDROCHLORIDE
     Indication: Nasal congestion
     Dates: start: 20240831

REACTIONS (3)
  - Urticaria [None]
  - Dyspnoea [None]
  - Ear swelling [None]

NARRATIVE: CASE EVENT DATE: 20240824
